FAERS Safety Report 8179090-9 (Version None)
Quarter: 2012Q1

REPORT INFORMATION
  Report Type: 
  Country: None (occurrence: None)
  Receive Date: 20120126
  Receipt Date: 20111013
  Transmission Date: 20120608
  Serious: No
  Sender: FDA-Public Use
  Company Number: PHEH2011US04386

PATIENT
  Age: 13 Year
  Sex: Male

DRUGS (3)
  1. AFINITOR [Suspect]
     Dosage: 10 MG, DAILY, ORAL
     Route: 048
     Dates: start: 20110826
  2. FLONASE [Concomitant]
  3. VENTOLIN [Concomitant]

REACTIONS (6)
  - CONSTIPATION [None]
  - DECREASED APPETITE [None]
  - WEIGHT DECREASED [None]
  - ACNE [None]
  - STOMATITIS [None]
  - SKIN MASS [None]
